FAERS Safety Report 8719929 (Version 3)
Quarter: 2013Q3

REPORT INFORMATION
  Report Type: Report from Study
  Country: JP (occurrence: JP)
  Receive Date: 20120813
  Receipt Date: 20130709
  Transmission Date: 20140515
  Serious: Yes (Other)
  Sender: FDA-Public Use
  Company Number: JP-009507513-2012SP032680

PATIENT
  Age: 67 Year
  Sex: Male
  Weight: 69 kg

DRUGS (12)
  1. REBETOL [Suspect]
     Indication: CHRONIC HEPATITIS C
     Dosage: 800 MG, QD
     Route: 048
     Dates: start: 20120403, end: 20120415
  2. REBETOL [Suspect]
     Dosage: 400 MG, QD
     Route: 048
     Dates: start: 20120416, end: 20120610
  3. REBETOL [Suspect]
     Dosage: 600 MG, QD
     Route: 048
     Dates: start: 20120611, end: 20120805
  4. REBETOL [Suspect]
     Dosage: 400 MG, QD
     Route: 048
     Dates: start: 20120806, end: 20120819
  5. REBETOL [Suspect]
     Dosage: 600 MG, QD
     Route: 048
     Dates: start: 20120820, end: 20120910
  6. PEGINTRON [Suspect]
     Indication: CHRONIC HEPATITIS C
     Dosage: 1.5 MICROGRAM PER KILOGRAM, QW
     Route: 058
     Dates: end: 20120910
  7. TELAVIC [Suspect]
     Indication: CHRONIC HEPATITIS C
     Dosage: 1500 MG, QD
     Route: 048
     Dates: start: 20120403, end: 20120625
  8. LIVALO [Concomitant]
     Indication: HYPERLIPIDAEMIA
     Dosage: 2 MG, QD FORMULATION: POR
     Route: 048
  9. FEROTYM [Concomitant]
     Indication: IRON DEFICIENCY ANAEMIA
     Dosage: 100 MG, QD FORMULATION: POR
     Route: 048
  10. CLARITIN REDITABS [Concomitant]
     Indication: PROPHYLAXIS
     Dosage: 10 MG, QD FORMULATION: POR
     Route: 048
  11. EPADEL S [Concomitant]
     Indication: HYPERLIPIDAEMIA
     Dosage: 1800MG, QD, FORMULATION: POR
     Route: 048
  12. MAGLAX [Concomitant]
     Indication: CONSTIPATION
     Dosage: 1320  MG, QD, FORMULATION: POR
     Route: 048

REACTIONS (2)
  - Anaemia [Not Recovered/Not Resolved]
  - Anaemia [Not Recovered/Not Resolved]
